FAERS Safety Report 5029418-3 (Version None)
Quarter: 2006Q2

REPORT INFORMATION
  Report Type: 
  Country: None (occurrence: None)
  Receive Date: 20060613
  Receipt Date: 20060606
  Transmission Date: 20061013
  Serious: Yes (Other)
  Sender: FDA-Public Use
  Company Number: 2006056814

PATIENT
  Age: 48 Year
  Sex: Female

DRUGS (4)
  1. LYRICA [Suspect]
     Indication: HEADACHE
     Dosage: 150 MG (75 MG, 2 IN 1 D), ORAL
     Route: 048
     Dates: start: 20051108, end: 20060109
  2. ESCITALOPRAM OXALATE [Concomitant]
  3. CLONAZEPAM [Concomitant]
  4. FLEXERIL [Concomitant]

REACTIONS (3)
  - BLINDNESS [None]
  - MACULAR DEGENERATION [None]
  - OBSESSIVE-COMPULSIVE DISORDER [None]
